FAERS Safety Report 7610726-4 (Version None)
Quarter: 2011Q3

REPORT INFORMATION
  Report Type: 
  Country: None (occurrence: None)
  Receive Date: 20110715
  Receipt Date: 20110705
  Transmission Date: 20111222
  Serious: Yes (Death, Hospitalization)
  Sender: FDA-Public Use
  Company Number: JP-BAYER-200914067BYL

PATIENT
  Age: 77 Year
  Sex: Male
  Weight: 59 kg

DRUGS (4)
  1. NEXAVAR [Suspect]
     Indication: HEPATIC NEOPLASM MALIGNANT
     Route: 048
     Dates: start: 20090911, end: 20091023
  2. ADALAT CC [Concomitant]
     Indication: HYPERTENSION
     Dosage: DAILY DOSE 20 MG
     Route: 048
     Dates: start: 20100118, end: 20100118
  3. DIOVAN [Concomitant]
     Indication: HYPERTENSION
     Dosage: DAILY DOSE 80 MG
     Route: 048
     Dates: start: 20100118, end: 20100118
  4. NEXAVAR [Suspect]
     Dosage: 400 MG (DAILY DOSE), , ORAL
     Route: 048
     Dates: start: 20091028, end: 20091228

REACTIONS (2)
  - GASTROINTESTINAL HAEMORRHAGE [None]
  - HEPATORENAL SYNDROME [None]
